FAERS Safety Report 5044532-4 (Version None)
Quarter: 2006Q3

REPORT INFORMATION
  Report Type: 
  Country: None (occurrence: None)
  Receive Date: 20060706
  Receipt Date: 20060626
  Transmission Date: 20061208
  Serious: Yes (Other)
  Sender: FDA-Public Use
  Company Number: ES-BRISTOL-MYERS SQUIBB COMPANY-13425350

PATIENT
  Sex: Female

DRUGS (2)
  1. ABILIFY [Suspect]
     Route: 048
     Dates: start: 20060601
  2. ZYPREXA [Concomitant]

REACTIONS (1)
  - HYPOTENSION [None]
